FAERS Safety Report 11049465 (Version 1)
Quarter: 2015Q2

REPORT INFORMATION
  Report Type: Spontaneous
  Country: DE (occurrence: DE)
  Receive Date: 20150420
  Receipt Date: 20150420
  Transmission Date: 20150821
  Serious: Yes (Other)
  Sender: FDA-Public Use
  Company Number: PHHY2015DE046360

PATIENT
  Sex: Male

DRUGS (2)
  1. TRILEPTAL [Suspect]
     Active Substance: OXCARBAZEPINE
     Dosage: UNK UNK, BID (1.7 ML- 0- 1.2 ML)
     Route: 065
     Dates: start: 201504
  2. TRILEPTAL [Suspect]
     Active Substance: OXCARBAZEPINE
     Indication: PRODUCT USED FOR UNKNOWN INDICATION
     Dosage: 1.2 ML, BID
     Route: 065

REACTIONS (4)
  - Infection [Unknown]
  - Pyrexia [Unknown]
  - Product use issue [Unknown]
  - Seizure [Unknown]

NARRATIVE: CASE EVENT DATE: 20150415
